FAERS Safety Report 13567255 (Version 1)
Quarter: 2017Q2

REPORT INFORMATION
  Report Type: Report from Study
  Country: None (occurrence: US)
  Receive Date: 20170522
  Receipt Date: 20170522
  Transmission Date: 20170830
  Serious: Yes (Other)
  Sender: FDA-Public Use
  Company Number: US-ABBVIE-17K-163-1978024-00

PATIENT
  Sex: Female
  Weight: 68.55 kg

DRUGS (4)
  1. HUMIRA [Suspect]
     Active Substance: ADALIMUMAB
     Indication: CROHN^S DISEASE
     Route: 058
     Dates: start: 20140214
  2. VALIUM [Concomitant]
     Active Substance: DIAZEPAM
     Indication: BACK PAIN
     Dosage: PRN
  3. ENTOCORT [Suspect]
     Active Substance: BUDESONIDE
     Indication: CROHN^S DISEASE
     Route: 065
     Dates: start: 201607, end: 201702
  4. DILAUDID [Concomitant]
     Active Substance: HYDROMORPHONE HYDROCHLORIDE
     Indication: CROHN^S DISEASE

REACTIONS (9)
  - Avulsion fracture [Not Recovered/Not Resolved]
  - Tendon rupture [Not Recovered/Not Resolved]
  - Fall [Recovered/Resolved]
  - Herpes zoster [Recovering/Resolving]
  - Local swelling [Recovered/Resolved]
  - Weight increased [Not Recovered/Not Resolved]
  - Herpes zoster [Recovered/Resolved]
  - Rotator cuff syndrome [Not Recovered/Not Resolved]
  - Contusion [Recovered/Resolved]

NARRATIVE: CASE EVENT DATE: 2015
